FAERS Safety Report 12328935 (Version 1)
Quarter: 2016Q2

REPORT INFORMATION
  Report Type: Spontaneous
  Country: US (occurrence: US)
  Receive Date: 20160503
  Receipt Date: 20160503
  Transmission Date: 20160815
  Serious: No
  Sender: FDA-Public Use
  Company Number: US-PHARMA-MED-USA-POI0580201600091

PATIENT
  Age: 81 Year
  Weight: 63.56 kg

DRUGS (17)
  1. ATORVASTATIN [Concomitant]
     Active Substance: ATORVASTATIN
     Indication: HYPERCHOLESTEROLAEMIA
     Dates: start: 20150609
  2. ALLOPURINOL. [Concomitant]
     Active Substance: ALLOPURINOL
     Indication: GOUT
     Dates: start: 2005
  3. FUROSEMIDE. [Concomitant]
     Active Substance: FUROSEMIDE
     Indication: CARDIAC DISORDER
     Dates: start: 1989
  4. ATENOLOL. [Concomitant]
     Active Substance: ATENOLOL
     Dates: start: 1989
  5. POTASSIUM CHLORIDE ORAL SOLUTION [Suspect]
     Active Substance: POTASSIUM CHLORIDE
     Dosage: 1 TEASPOON DAILY IN 4 OUNCES CRANBERRY JUICE
     Dates: start: 201307
  6. DIGOXIN. [Concomitant]
     Active Substance: DIGOXIN
     Indication: CARDIAC FAILURE CONGESTIVE
     Dates: start: 1989
  7. GLIPIZIDE. [Concomitant]
     Active Substance: GLIPIZIDE
     Indication: DIABETES MELLITUS
     Dosage: 1.5 TABLETS WITH BREAKFAST AND DINNER
     Dates: start: 1999
  8. VITAMIN C [Concomitant]
     Active Substance: ASCORBIC ACID
     Indication: VITAMIN SUPPLEMENTATION
     Dates: start: 1989
  9. LISINOPRIL. [Concomitant]
     Active Substance: LISINOPRIL
     Dates: start: 1989
  10. BABY ASPIRIN [Concomitant]
     Active Substance: ASPIRIN
     Indication: CARDIAC DISORDER
     Dosage: AT BEDTIME
     Dates: start: 2010
  11. ALENDRONATE [Concomitant]
     Active Substance: ALENDRONATE SODIUM
     Indication: OSTEOARTHRITIS
     Dates: start: 2010
  12. ADVAIR HFA [Concomitant]
     Active Substance: FLUTICASONE PROPIONATE\SALMETEROL XINAFOATE
     Indication: ASTHMA
     Dosage: 1 PUFF AT 9 AM AND 1 PUFF AT 9 PM
     Dates: start: 2000
  13. FISH OIL [Concomitant]
     Active Substance: FISH OIL
     Indication: CARDIAC DISORDER
     Dates: start: 2009
  14. HUMALOG [Concomitant]
     Active Substance: INSULIN LISPRO
     Indication: DIABETES MELLITUS
     Dosage: 5 UNITS AT SUPPER TIME
     Route: 058
     Dates: start: 201307
  15. LANTUS [Concomitant]
     Active Substance: INSULIN GLARGINE
     Indication: DIABETES MELLITUS
     Dosage: 12 UNITS AT 10 AM AND 5 UNITS AT BEDTIME
     Dates: start: 201307
  16. POTASSIUM CHLORIDE ORAL SOLUTION [Suspect]
     Active Substance: POTASSIUM CHLORIDE
     Indication: HYPOKALAEMIA
     Dosage: 1.5 TEASPOONS DAILY IN CRANBERRY JUICE
     Dates: start: 1989, end: 201307
  17. ONE A DAY WOMENS FORMULA [Concomitant]
     Indication: VITAMIN SUPPLEMENTATION
     Dates: start: 1985

REACTIONS (1)
  - Diabetes mellitus inadequate control [Unknown]

NARRATIVE: CASE EVENT DATE: 201307
